FAERS Safety Report 7752247-4 (Version None)
Quarter: 2011Q3

REPORT INFORMATION
  Report Type: 
  Country: None (occurrence: None)
  Receive Date: 20110915
  Receipt Date: 20110907
  Transmission Date: 20111222
  Serious: Yes (Congenital Anomaly, Other)
  Sender: FDA-Public Use
  Company Number: US-VIROPHARMA INCORPORATED-20110907CINRY2271

PATIENT
  Sex: Female
  Weight: 3.659 kg

DRUGS (2)
  1. CINRYZE [Suspect]
     Indication: HEREDITARY ANGIOEDEMA
     Dosage: UNKNOWN
     Route: 064
     Dates: start: 20100414
  2. PREDNISONE [Suspect]
     Indication: PRODUCT USED FOR UNKNOWN INDICATION
     Dosage: UNKNOWN
     Route: 064

REACTIONS (5)
  - PATENT DUCTUS ARTERIOSUS [None]
  - SUPRAVENTRICULAR EXTRASYSTOLES [None]
  - CONGENITAL CARDIOVASCULAR ANOMALY [None]
  - ATRIAL SEPTAL DEFECT [None]
  - HETEROTAXIA [None]
